FAERS Safety Report 6317436-4 (Version None)
Quarter: 2009Q3

REPORT INFORMATION
  Report Type: 
  Country: None (occurrence: None)
  Receive Date: 20090820
  Receipt Date: 20090820
  Transmission Date: 20100115
  Serious: Yes (Hospitalization, Disabling)
  Sender: FDA-Public Use
  Company Number: None

PATIENT
  Age: 39 Year
  Sex: Female
  Weight: 79.3795 kg

DRUGS (1)
  1. NUVARING [Suspect]
     Indication: MENSTRUATION IRREGULAR
     Dosage: 1 RING EVERY 3 WEEKS VAG
     Route: 067
     Dates: start: 20081105, end: 20081207

REACTIONS (3)
  - COMPLICATION OF DEVICE REMOVAL [None]
  - DEEP VEIN THROMBOSIS [None]
  - HYPOAESTHESIA [None]
